FAERS Safety Report 4273153-6 (Version None)
Quarter: 2004Q1

REPORT INFORMATION
  Report Type: 
  Country: None (occurrence: None)
  Receive Date: 20040116
  Receipt Date: 20040113
  Transmission Date: 20041129
  Serious: Yes (Death)
  Sender: FDA-Public Use
  Company Number: DE-GLAXOSMITHKLINE-D0042881A

PATIENT
  Age: 65 Year
  Sex: Male
  Weight: 115 kg

DRUGS (6)
  1. ZYLORIC [Suspect]
     Dosage: 300MG PER DAY
     Route: 048
     Dates: start: 20010721
  2. VOLMAX [Suspect]
     Dosage: 8MG PER DAY
     Route: 048
     Dates: start: 20010723
  3. DIAZEPAM [Suspect]
     Indication: IRRITABILITY
     Dosage: 5MG SINGLE DOSE
     Route: 042
     Dates: start: 20010720, end: 20010720
  4. CIPROFLOXACIN HCL [Suspect]
     Dosage: 2TAB PER DAY
     Route: 048
     Dates: start: 20010720, end: 20010724
  5. ASPIRIN [Suspect]
     Indication: THROMBOSIS PROPHYLAXIS
     Dosage: 1TAB PER DAY
     Route: 048
     Dates: start: 20010725
  6. MULTIPLE MEDICATION [Concomitant]

REACTIONS (9)
  - BLISTER [None]
  - CARDIOVASCULAR DISORDER [None]
  - MUCOSAL EROSION [None]
  - PYREXIA [None]
  - RASH MACULAR [None]
  - RENAL FAILURE [None]
  - RESPIRATORY FAILURE [None]
  - SEPTIC SHOCK [None]
  - TOXIC EPIDERMAL NECROLYSIS [None]
